FAERS Safety Report 25650234 (Version 1)
Quarter: 2025Q3

REPORT INFORMATION
  Report Type: Spontaneous
  Country: US (occurrence: None)
  Receive Date: 20250806
  Receipt Date: 20250806
  Transmission Date: 20251021
  Serious: Yes (Hospitalization)
  Sender: FDA-CTU
  Company Number: None

PATIENT
  Age: 66 Year
  Sex: Female
  Weight: 88.45 kg

DRUGS (1)
  1. ISOVUE 370 [Suspect]
     Active Substance: IOPAMIDOL
     Route: 040

REACTIONS (5)
  - Unresponsive to stimuli [None]
  - Drooling [None]
  - Agonal respiration [None]
  - Ventricular tachycardia [None]
  - Procedural complication [None]

NARRATIVE: CASE EVENT DATE: 20250729
